FAERS Safety Report 24910041 (Version 1)
Quarter: 2025Q1

REPORT INFORMATION
  Report Type: Spontaneous
  Country: FR (occurrence: None)
  Receive Date: 20250131
  Receipt Date: 20250131
  Transmission Date: 20250409
  Serious: Yes (Hospitalization, Other)
  Sender: UNICHEM
  Company Number: FR-Unichem Pharmaceuticals (USA) Inc-UCM202501-000137

PATIENT
  Age: 52 Year
  Sex: Female

DRUGS (8)
  1. CARBAMAZEPINE [Suspect]
     Active Substance: CARBAMAZEPINE
     Indication: Temporal lobe epilepsy
  2. PERAMPANEL [Suspect]
     Active Substance: PERAMPANEL
     Indication: Temporal lobe epilepsy
  3. CENOBAMATE [Suspect]
     Active Substance: CENOBAMATE
     Indication: Temporal lobe epilepsy
  4. PROPOFOL [Concomitant]
     Active Substance: PROPOFOL
  5. PROPOFOL [Concomitant]
     Active Substance: PROPOFOL
  6. LEVETIRACETAM [Concomitant]
     Active Substance: LEVETIRACETAM
     Indication: Temporal lobe epilepsy
  7. CLOBAZAM [Concomitant]
     Active Substance: CLOBAZAM
     Indication: Temporal lobe epilepsy
  8. METHYLPREDNISOLONE [Concomitant]
     Active Substance: METHYLPREDNISOLONE
     Indication: Laryngeal oedema

REACTIONS (7)
  - Bradycardia [Recovered/Resolved]
  - Clonus [Recovered/Resolved]
  - Mydriasis [Recovered/Resolved]
  - Suicide attempt [Unknown]
  - Coma scale abnormal [Unknown]
  - Toxicity to various agents [Unknown]
  - Overdose [Unknown]
